FAERS Safety Report 6083111-7 (Version None)
Quarter: 2009Q1

REPORT INFORMATION
  Report Type: 
  Country: None (occurrence: None)
  Receive Date: 20090213
  Receipt Date: 20090213
  Transmission Date: 20090719
  Serious: Yes (Hospitalization)
  Sender: FDA-Public Use
  Company Number: None

PATIENT
  Age: 24 Year
  Sex: Female
  Weight: 72.5755 kg

DRUGS (1)
  1. CHANTIX [Suspect]
     Indication: SMOKING CESSATION THERAPY
     Dosage: ONE PILL TWICE DAILY PO
     Route: 048
     Dates: start: 20070929, end: 20071003

REACTIONS (6)
  - BANKRUPTCY [None]
  - BIPOLAR DISORDER [None]
  - EUPHORIC MOOD [None]
  - INSOMNIA [None]
  - MANIA [None]
  - THINKING ABNORMAL [None]
